FAERS Safety Report 10024026 (Version 1)
Quarter: 2014Q1

REPORT INFORMATION
  Report Type: Spontaneous
  Country: US (occurrence: None)
  Receive Date: 20140318
  Receipt Date: 20140318
  Transmission Date: 20141002
  Serious: Yes (Other)
  Sender: FDA-Public Use
  Company Number: 2014-00043

PATIENT
  Age: 70 Year
  Sex: Female

DRUGS (1)
  1. ZICAM COLD REMEDY ORAL MIST [Suspect]
     Indication: NASOPHARYNGITIS
     Dosage: ORALLY 4 SPRAYS 1 TIME
     Route: 048
     Dates: start: 20140310

REACTIONS (1)
  - Ageusia [None]
